FAERS Safety Report 21527023 (Version 1)
Quarter: 2022Q4

REPORT INFORMATION
  Report Type: Spontaneous
  Country: IN (occurrence: IN)
  Receive Date: 20221031
  Receipt Date: 20221031
  Transmission Date: 20230113
  Serious: Yes (Other)
  Sender: FDA-Public Use
  Company Number: IN-CIPLA LTD.-2022IN06311

PATIENT
  Age: 48 Year
  Sex: Female

DRUGS (7)
  1. TENOFOVIR [Suspect]
     Active Substance: TENOFOVIR
     Indication: HIV infection
     Dosage: UNK
     Route: 065
  2. EFAVIRENZ [Suspect]
     Active Substance: EFAVIRENZ
     Indication: HIV infection
     Dosage: UNK
     Route: 065
  3. LAMIVUDINE [Suspect]
     Active Substance: LAMIVUDINE
     Indication: HIV infection
     Dosage: UNK
     Route: 065
  4. ZIDOVUDINE [Suspect]
     Active Substance: ZIDOVUDINE
     Indication: HIV infection
     Dosage: UNK
     Route: 065
  5. ZIDOVUDINE [Suspect]
     Active Substance: ZIDOVUDINE
     Dosage: UNK, RE-STARTED
     Route: 065
  6. NEVIRAPINE [Suspect]
     Active Substance: NEVIRAPINE
     Indication: HIV infection
     Dosage: UNK
     Route: 065
  7. NEVIRAPINE [Suspect]
     Active Substance: NEVIRAPINE
     Dosage: UNK, RE-STARTED
     Route: 065

REACTIONS (9)
  - Acute on chronic liver failure [Recovered/Resolved]
  - Anaemia [Unknown]
  - Nephropathy toxic [Unknown]
  - Thrombocytopenia [Unknown]
  - Portal hypertension [Unknown]
  - Hepatic cirrhosis [Unknown]
  - Autoimmune hepatitis [Unknown]
  - Varices oesophageal [Unknown]
  - Gastric disorder [Unknown]
